FAERS Safety Report 17540534 (Version 3)
Quarter: 2020Q3

REPORT INFORMATION
  Report Type: Spontaneous
  Country: JP (occurrence: JP)
  Receive Date: 20200313
  Receipt Date: 20200406
  Transmission Date: 20201105
  Serious: Yes (Hospitalization, Other)
  Sender: FDA-Public Use
  Company Number: JP-SHIRE-JP202009371AA

PATIENT
  Age: 8 Year
  Sex: Male

DRUGS (4)
  1. EMICIZUMAB. [Suspect]
     Active Substance: EMICIZUMAB
     Indication: FACTOR VIII DEFICIENCY
     Route: 065
  2. EMICIZUMAB. [Suspect]
     Active Substance: EMICIZUMAB
     Indication: PROPHYLAXIS
  3. ADVATE [Suspect]
     Active Substance: ANTIHEMOPHILIC FACTOR, HUMAN RECOMBINANT
     Indication: FACTOR VIII DEFICIENCY
     Route: 065
  4. ADVATE [Suspect]
     Active Substance: ANTIHEMOPHILIC FACTOR, HUMAN RECOMBINANT
     Indication: PROPHYLAXIS

REACTIONS (6)
  - Anaemia [Unknown]
  - Vomiting [Recovered/Resolved]
  - Tonsillar haemorrhage [Recovering/Resolving]
  - Factor VIII inhibition [Unknown]
  - Haematemesis [Unknown]
  - Haemorrhage [Recovered/Resolved]
